FAERS Safety Report 21809971 (Version 2)
Quarter: 2023Q2

REPORT INFORMATION
  Report Type: Spontaneous
  Country: CH (occurrence: CH)
  Receive Date: 20230103
  Receipt Date: 20230505
  Transmission Date: 20230722
  Serious: Yes (Other)
  Sender: FDA-Public Use
  Company Number: None

PATIENT
  Age: 49 Year
  Sex: Female
  Weight: 58 kg

DRUGS (15)
  1. VORICONAZOLE [Interacting]
     Active Substance: VORICONAZOLE
     Indication: Bronchopulmonary aspergillosis
     Dosage: 6 MG/KG (TWO INTRAVENOUS (IV) LOADING DOSES) 350 MG FOR 58 KG)
     Route: 042
  2. VORICONAZOLE [Interacting]
     Active Substance: VORICONAZOLE
     Dosage: 4 MG/KG, BID (230 MG), MAINTENANCE DOSE
     Route: 042
  3. VORICONAZOLE [Interacting]
     Active Substance: VORICONAZOLE
     Dosage: 200 MG, BID
     Route: 042
  4. VORICONAZOLE [Interacting]
     Active Substance: VORICONAZOLE
     Dosage: 200 MG, BID
     Route: 048
  5. VORICONAZOLE [Interacting]
     Active Substance: VORICONAZOLE
     Dosage: 250 MG, BID ON D50
     Route: 048
     Dates: start: 20220802
  6. VORICONAZOLE [Interacting]
     Active Substance: VORICONAZOLE
     Dosage: 125 MG, BID ON D61
     Route: 048
  7. VORICONAZOLE [Interacting]
     Active Substance: VORICONAZOLE
     Dosage: 75 MG, BID ON D63
     Route: 048
  8. RYDAPT [Interacting]
     Active Substance: MIDOSTAURIN
     Indication: Acute myeloid leukaemia
     Dosage: 50 MG, BID FROM D9 TO D21, LAST DOSE WAS GIVEN ON D22
     Route: 048
     Dates: start: 20220831, end: 20220908
  9. RYDAPT [Interacting]
     Active Substance: MIDOSTAURIN
     Dosage: 50 MG, BID FROM D51 TO D64
     Route: 065
  10. CLARITHROMYCIN [Concomitant]
     Active Substance: CLARITHROMYCIN
     Indication: Pneumonia
     Dosage: 500 MG ( 2 IN TOTAL) (1 G) ON DAY D58
     Route: 041
     Dates: start: 20220907, end: 20220907
  11. DAUNORUBICIN [Concomitant]
     Active Substance: DAUNORUBICIN
     Indication: Acute myeloid leukaemia
     Dosage: 60 MG/M2, QD (FROM DAY 1 (D1) TO D3)
     Route: 065
  12. DAUNORUBICIN [Concomitant]
     Active Substance: DAUNORUBICIN
     Dosage: 60 MG/M2, QD (FROM D43 TO D45,
     Route: 065
  13. CYTARABINE [Concomitant]
     Active Substance: CYTARABINE
     Indication: Acute myeloid leukaemia
     Dosage: 200 MG/M2, QD (FROM D1 TO D7)
     Route: 065
  14. CYTARABINE [Concomitant]
     Active Substance: CYTARABINE
     Dosage: 1000 MG/M2, BID  FROM D43 TO D49 AS SECOND CYCLE
     Route: 065
  15. FLUCONAZOLE [Concomitant]
     Active Substance: FLUCONAZOLE
     Indication: Prophylaxis
     Dosage: 400 MG, QD FROM D5
     Route: 065

REACTIONS (4)
  - Drug level increased [Recovered/Resolved]
  - Drug level increased [Recovered/Resolved]
  - Drug interaction [Recovered/Resolved]
  - Hallucination, visual [Recovered/Resolved]

NARRATIVE: CASE EVENT DATE: 20220906
